FAERS Safety Report 12817239 (Version 1)
Quarter: 2016Q4

REPORT INFORMATION
  Report Type: Spontaneous
  Country: US (occurrence: US)
  Receive Date: 20161005
  Receipt Date: 20161005
  Transmission Date: 20170207
  Serious: Yes (Life-Threatening, Hospitalization)
  Sender: FDA-Public Use
  Company Number: None

PATIENT
  Age: 27 Year
  Sex: Female
  Weight: 130 kg

DRUGS (1)
  1. XARELTO [Suspect]
     Active Substance: RIVAROXABAN
     Indication: DEEP VEIN THROMBOSIS
     Dates: start: 20160401, end: 20160617

REACTIONS (9)
  - Tachycardia [None]
  - Chest discomfort [None]
  - Hyperhidrosis [None]
  - Dyspnoea [None]
  - Deep vein thrombosis [None]
  - Tachypnoea [None]
  - Chest pain [None]
  - Pulmonary embolism [None]
  - Muscle spasms [None]

NARRATIVE: CASE EVENT DATE: 20160617
